FAERS Safety Report 20231648 (Version 1)
Quarter: 2021Q4

REPORT INFORMATION
  Report Type: Spontaneous
  Country: GB (occurrence: GB)
  Receive Date: 20211227
  Receipt Date: 20211227
  Transmission Date: 20220303
  Serious: Yes (Other)
  Sender: FDA-Public Use
  Company Number: GB-ENDO PHARMACEUTICALS INC-2021-013866

PATIENT
  Age: 42 Year
  Sex: Female
  Weight: 75 kg

DRUGS (5)
  1. EDEX [Suspect]
     Active Substance: ALPROSTADIL
     Indication: Product used for unknown indication
     Dosage: UNK UNKNOWN, UNKNOWN (PROSTAGLANDIN E1)
     Route: 065
  2. EDEX [Suspect]
     Active Substance: ALPROSTADIL
     Indication: Product used for unknown indication
     Dosage: UNK UNKNOWN, UNKNOWN (PROSTAGLANDIN E1)
     Route: 065
  3. EDEX [Suspect]
     Active Substance: ALPROSTADIL
     Indication: Product used for unknown indication
     Dosage: UNK UNKNOWN, UNKNOWN (PROSTAGLANDIN E1)
     Route: 065
  4. EDEX [Suspect]
     Active Substance: ALPROSTADIL
     Indication: Product used for unknown indication
     Dosage: UNK UNKNOWN, UNKNOWN (PROSTAGLANDIN E1)
     Route: 065
  5. ASTRAZENECA COVID-19 VACCINE [Suspect]
     Active Substance: AZD-1222
     Indication: Product used for unknown indication
     Dosage: UNK UNKNOWN, UNKNOWN (DOSE TWO)
     Route: 065
     Dates: start: 20210629

REACTIONS (3)
  - Menstrual disorder [Recovered/Resolved]
  - Generalised anxiety disorder [Recovering/Resolving]
  - Product use issue [Unknown]

NARRATIVE: CASE EVENT DATE: 20210726
